FAERS Safety Report 24592767 (Version 1)
Quarter: 2024Q4

REPORT INFORMATION
  Report Type: Spontaneous
  Country: US (occurrence: None)
  Receive Date: 20241107
  Receipt Date: 20241107
  Transmission Date: 20250115
  Serious: Yes (unspecified)
  Sender: Public
  Company Number: None

PATIENT
  Age: 50 Year
  Sex: Male
  Weight: 73 kg

DRUGS (1)
  1. BACTRIM DS [Suspect]
     Active Substance: SULFAMETHOXAZOLE\TRIMETHOPRIM
     Indication: Urinary tract infection
     Dates: start: 20240730, end: 20240730

REACTIONS (5)
  - Urticaria [None]
  - Pruritus [None]
  - Cyanosis [None]
  - Oxygen saturation decreased [None]
  - Therapy interrupted [None]

NARRATIVE: CASE EVENT DATE: 20240730
